FAERS Safety Report 7205920-0 (Version None)
Quarter: 2011Q1

REPORT INFORMATION
  Report Type: 
  Country: None (occurrence: None)
  Receive Date: 20110103
  Receipt Date: 20101227
  Transmission Date: 20110831
  Serious: Yes (Other)
  Sender: FDA-Public Use
  Company Number: DE-AMGEN-DEUSP2010012292

PATIENT

DRUGS (4)
  1. CELEBREX [Concomitant]
     Indication: PRODUCT USED FOR UNKNOWN INDICATION
  2. ENBREL [Suspect]
     Indication: ANKYLOSING SPONDYLITIS
     Dosage: TWICE 25 MG PER WEEK
     Dates: start: 20100310, end: 20100101
  3. CIPRALEX [Concomitant]
     Indication: DEPRESSION
     Dosage: 10 MG, UNK
  4. METFORMIN HCL [Concomitant]
     Indication: TYPE 2 DIABETES MELLITUS

REACTIONS (2)
  - THYROID NEOPLASM [None]
  - WEIGHT DECREASED [None]
